FAERS Safety Report 11896061 (Version 2)
Quarter: 2016Q1

REPORT INFORMATION
  Report Type: Spontaneous
  Country: US (occurrence: US)
  Receive Date: 20160107
  Receipt Date: 20160108
  Transmission Date: 20160526
  Serious: No
  Sender: FDA-Public Use
  Company Number: US-PFIZER INC-2015471413

PATIENT
  Sex: Male

DRUGS (7)
  1. PRISTIQ EXTENDED RELEASE [Suspect]
     Active Substance: DESVENLAFAXINE SUCCINATE
     Indication: ANXIETY
     Dosage: UNK
     Dates: start: 20151205
  2. XANAX [Concomitant]
     Active Substance: ALPRAZOLAM
     Indication: ANXIETY
     Dosage: 1 MG, AS NEEDED
     Route: 048
     Dates: start: 201510
  3. PRISTIQ EXTENDED RELEASE [Suspect]
     Active Substance: DESVENLAFAXINE SUCCINATE
     Dosage: 50 MG, UNK
  4. METHOCARBAMOL. [Concomitant]
     Active Substance: METHOCARBAMOL
     Indication: MUSCLE SPASMS
     Dosage: 500 MG, AS NEEDED
     Dates: start: 201510
  5. PRISTIQ EXTENDED RELEASE [Suspect]
     Active Substance: DESVENLAFAXINE SUCCINATE
     Dosage: UNK, ALTERNATE DAY (TAKING 1/2 OF THE TABLET EVERY OTHER DAY)
  6. CYCLOBENZAPRINE [Concomitant]
     Active Substance: CYCLOBENZAPRINE
     Indication: SLEEP DISORDER
     Dosage: 10MG TABLETS, ONE EACH NIGHT NEEDED
     Route: 048
     Dates: start: 201511
  7. MELATONIN [Concomitant]
     Active Substance: MELATONIN
     Indication: SLEEP DISORDER

REACTIONS (13)
  - Drug prescribing error [Unknown]
  - Feeling abnormal [Unknown]
  - Eyelid irritation [Recovered/Resolved]
  - Confusional state [Recovering/Resolving]
  - Sensory disturbance [Unknown]
  - Feeling abnormal [Not Recovered/Not Resolved]
  - Hangover [Unknown]
  - Wrong technique in product usage process [Unknown]
  - Somnolence [Unknown]
  - Ocular hyperaemia [Recovered/Resolved]
  - Eye disorder [Recovered/Resolved]
  - Loss of libido [Unknown]
  - Paraesthesia [Unknown]
